FAERS Safety Report 23706489 (Version 1)
Quarter: 2024Q2

REPORT INFORMATION
  Report Type: Spontaneous
  Country: US (occurrence: US)
  Receive Date: 20240404
  Receipt Date: 20240404
  Transmission Date: 20240716
  Serious: Yes (Other)
  Sender: FDA-Public Use
  Company Number: US-002147023-NVSC2020US371050

PATIENT

DRUGS (1)
  1. BEOVU [Suspect]
     Active Substance: BROLUCIZUMAB-DBLL
     Indication: Product used for unknown indication
     Dosage: 6 MG, QMO FOR 3 MONTHS, FOLLOWED BY 1 X EVERY 8 TO 12 WEEKS
     Route: 047

REACTIONS (3)
  - Retinal vasculitis [Unknown]
  - Uveitis [Unknown]
  - Vitritis [Unknown]
